FAERS Safety Report 5677231-6 (Version None)
Quarter: 2008Q1

REPORT INFORMATION
  Report Type: 
  Country: None (occurrence: None)
  Receive Date: 20080324
  Receipt Date: 20080320
  Transmission Date: 20080703
  Serious: Yes (Hospitalization, Other)
  Sender: FDA-Public Use
  Company Number: US-ASTRAZENECA-2007UW23996

PATIENT
  Age: 73 Year
  Sex: Female
  Weight: 80.9 kg

DRUGS (13)
  1. ARIMIDEX [Suspect]
     Indication: BREAST CANCER STAGE I
     Route: 048
     Dates: start: 20060901
  2. ACCUPRIL [Concomitant]
  3. CALCIUM [Concomitant]
     Route: 048
  4. COUMADIN [Concomitant]
  5. GERITOL COMPLETE [Concomitant]
     Route: 048
  6. GLIMEPIRIDE [Concomitant]
  7. HYTRIN [Concomitant]
  8. LASIX [Concomitant]
  9. MYCOSTATIN [Concomitant]
     Indication: CANDIDIASIS
     Dosage: 100,000 U/GM POWDER
     Route: 061
  10. NEXIUM [Concomitant]
     Route: 048
  11. NITROLINGUAL [Concomitant]
     Route: 060
  12. VYTORIN [Concomitant]
     Dosage: 10 MG/20 MG
  13. XANAX [Concomitant]

REACTIONS (7)
  - BLOOD PRESSURE DECREASED [None]
  - COUGH [None]
  - GOUT [None]
  - HERPES ZOSTER [None]
  - HYPERSOMNIA [None]
  - MALAISE [None]
  - PNEUMONIA [None]
